FAERS Safety Report 15422245 (Version 1)
Quarter: 2018Q3

REPORT INFORMATION
  Report Type: Report from Study
  Country: CO (occurrence: CO)
  Receive Date: 20180924
  Receipt Date: 20180924
  Transmission Date: 20181010
  Serious: Yes (Hospitalization, Other)
  Sender: FDA-Public Use
  Company Number: CO-UCBSA-2018042405

PATIENT
  Age: 23 Year
  Sex: Male
  Weight: 50 kg

DRUGS (4)
  1. CARBAMAZEPINE. [Concomitant]
     Active Substance: CARBAMAZEPINE
     Indication: EPILEPSY
     Dosage: 200 MG, 2X/DAY (BID)
     Route: 048
     Dates: start: 20160110
  2. LACOSAMIDE. [Suspect]
     Active Substance: LACOSAMIDE
     Indication: EPILEPSY
     Dosage: 10 MG/ML, 3X/DAY (TID)
     Route: 048
     Dates: start: 20150510
  3. LOXAPINE. [Concomitant]
     Active Substance: LOXAPINE
     Indication: EPILEPSY
     Dosage: 25 MG, ONCE DAILY (QD)
     Route: 048
     Dates: start: 20160110
  4. PHENOBARBITAL. [Concomitant]
     Active Substance: PHENOBARBITAL
     Indication: EPILEPSY
     Dosage: UNK, ONCE DAILY (QD)
     Route: 048
     Dates: start: 20160110

REACTIONS (2)
  - Respiratory tract infection [Recovered/Resolved]
  - Off label use [Unknown]

NARRATIVE: CASE EVENT DATE: 20150510
